FAERS Safety Report 6636163-7 (Version None)
Quarter: 2010Q1

REPORT INFORMATION
  Report Type: 
  Country: None (occurrence: None)
  Receive Date: 20100316
  Receipt Date: 20100308
  Transmission Date: 20100710
  Serious: Yes (Hospitalization, Other)
  Sender: FDA-Public Use
  Company Number: GB-ASTRAZENECA-2009SE27652

PATIENT
  Age: 42 Year
  Sex: Male

DRUGS (8)
  1. QUETIAPINE [Suspect]
     Indication: SCHIZOPHRENIA
     Route: 048
     Dates: start: 20090401
  2. QUETIAPINE [Suspect]
     Route: 048
  3. CIPRAMIL [Suspect]
     Indication: DEPRESSION
     Route: 048
  4. CIPRAMIL [Suspect]
     Route: 048
  5. CLOZARIL [Suspect]
     Indication: SCHIZOPHRENIA
     Dosage: TWO TIMES A DAY.
     Route: 048
     Dates: start: 20080704
  6. CLOZARIL [Suspect]
     Dosage: 41 X 100 MILLIGRAMS
     Route: 048
  7. CLOZARIL [Suspect]
     Route: 048
     Dates: start: 20090401
  8. PIRENZEPINE [Concomitant]
     Route: 048
     Dates: start: 20090401

REACTIONS (2)
  - OVERDOSE [None]
  - SOMNOLENCE [None]
